FAERS Safety Report 23265999 (Version 2)
Quarter: 2024Q3

REPORT INFORMATION
  Report Type: Spontaneous
  Country: IT (occurrence: IT)
  Receive Date: 20231206
  Receipt Date: 20240814
  Transmission Date: 20241017
  Serious: Yes (Hospitalization, Other)
  Sender: STRIDES
  Company Number: None

PATIENT
  Age: 59 Year
  Sex: Male

DRUGS (11)
  1. DOXORUBICIN [Suspect]
     Active Substance: DOXORUBICIN
     Indication: High-grade B-cell lymphoma
     Dosage: UNK, CYCLICAL (4 CYCLES R-CHOP)
     Route: 065
  2. DOXORUBICIN [Suspect]
     Active Substance: DOXORUBICIN
     Indication: Tonsil cancer
  3. PREDNISOLONE [Suspect]
     Active Substance: PREDNISOLONE
     Indication: High-grade B-cell lymphoma
     Dosage: UNK, CYCLICAL (4 CYCLES R-CHOP)
     Route: 065
  4. PREDNISOLONE [Suspect]
     Active Substance: PREDNISOLONE
     Indication: Tonsil cancer
  5. CYCLOPHOSPHAMIDE [Suspect]
     Active Substance: CYCLOPHOSPHAMIDE
     Indication: High-grade B-cell lymphoma
     Dosage: UNK, CYCLICAL (4 CYCLES R-CHOP)
     Route: 065
  6. CYCLOPHOSPHAMIDE [Suspect]
     Active Substance: CYCLOPHOSPHAMIDE
     Indication: Tonsil cancer
     Dosage: UNK, CYCLICAL (4 CYCLES)
     Route: 065
  7. CYCLOPHOSPHAMIDE [Suspect]
     Active Substance: CYCLOPHOSPHAMIDE
     Indication: Metastases to lymph nodes
  8. VINCRISTINE [Suspect]
     Active Substance: VINCRISTINE
     Indication: High-grade B-cell lymphoma
     Dosage: UNK, CYCLICAL (4 CYCLES R-CHOP)
     Route: 065
  9. VINCRISTINE [Suspect]
     Active Substance: VINCRISTINE
     Indication: Tonsil cancer
  10. RITUXIMAB [Suspect]
     Active Substance: RITUXIMAB
     Indication: High-grade B-cell lymphoma
     Dosage: UNK, CYCLICAL (4 CYCLES R-CHOP)
     Route: 065
  11. RITUXIMAB [Suspect]
     Active Substance: RITUXIMAB
     Indication: Tonsil cancer

REACTIONS (3)
  - Metastases to lymph nodes [Recovered/Resolved]
  - Invasive ductal breast carcinoma [Recovered/Resolved]
  - Drug ineffective [Unknown]
